FAERS Safety Report 6896850-2 (Version None)
Quarter: 2010Q3

REPORT INFORMATION
  Report Type: 
  Country: None (occurrence: None)
  Receive Date: 20100802
  Receipt Date: 20070221
  Transmission Date: 20110219
  Serious: No
  Sender: FDA-Public Use
  Company Number: US-PFIZER INC-2007014383

PATIENT
  Age: 82 Year
  Sex: Male

DRUGS (5)
  1. LYRICA [Suspect]
  2. REQUIP [Concomitant]
  3. PLAVIX [Concomitant]
  4. ZANTAC [Concomitant]
  5. INSULIN [Concomitant]

REACTIONS (1)
  - TREMOR [None]
